FAERS Safety Report 12425491 (Version 1)
Quarter: 2016Q2

REPORT INFORMATION
  Report Type: Spontaneous
  Country: US (occurrence: US)
  Receive Date: 20160601
  Receipt Date: 20160601
  Transmission Date: 20160815
  Serious: No
  Sender: FDA-Public Use
  Company Number: US-BAYER-2016-106983

PATIENT
  Sex: Male

DRUGS (1)
  1. CHILDREN CLARITIN ALLERGY [Suspect]
     Active Substance: LORATADINE
     Dosage: UNK

REACTIONS (5)
  - Unevaluable event [None]
  - Abnormal behaviour [None]
  - Eye swelling [None]
  - Impulse-control disorder [None]
  - Sneezing [None]
